FAERS Safety Report 23058290 (Version 1)
Quarter: 2023Q4

REPORT INFORMATION
  Report Type: Spontaneous
  Country: US (occurrence: None)
  Receive Date: 20231011
  Receipt Date: 20231011
  Transmission Date: 20240110
  Serious: Yes (Hospitalization, Other)
  Sender: FDA-Public Use
  Company Number: None

PATIENT
  Age: 68 Year
  Sex: Male

DRUGS (1)
  1. JAKAFI [Suspect]
     Active Substance: RUXOLITINIB
     Indication: Polycythaemia vera
     Dosage: FREQUENCY : TWICE A DAY;?
     Route: 048
     Dates: start: 20220614

REACTIONS (7)
  - Muscle spasms [None]
  - Muscle spasms [None]
  - Product use issue [None]
  - Nightmare [None]
  - Diarrhoea [None]
  - Sleep disorder [None]
  - Cerebrovascular accident [None]

NARRATIVE: CASE EVENT DATE: 20231010
